FAERS Safety Report 16340801 (Version 1)
Quarter: 2019Q2

REPORT INFORMATION
  Report Type: Spontaneous
  Country: US (occurrence: US)
  Receive Date: 20190416
  Receipt Date: 20190416
  Transmission Date: 20190711
  Serious: No
  Sender: FDA-Public Use
  Company Number: None

PATIENT
  Age: 76 Year
  Sex: Male

DRUGS (1)
  1. MAVYRET [Suspect]
     Active Substance: GLECAPREVIR\PIBRENTASVIR
     Indication: HEPATITIS C
     Route: 048
     Dates: start: 201903

REACTIONS (6)
  - Anger [None]
  - Decreased appetite [None]
  - Headache [None]
  - Mood altered [None]
  - Taste disorder [None]
  - Fatigue [None]

NARRATIVE: CASE EVENT DATE: 20190405
